FAERS Safety Report 23932293 (Version 3)
Quarter: 2024Q3

REPORT INFORMATION
  Report Type: Spontaneous
  Country: US (occurrence: US)
  Receive Date: 20240603
  Receipt Date: 20240813
  Transmission Date: 20241017
  Serious: Yes (Hospitalization, Other)
  Sender: KINIKSA PHARMACEUTICALS
  Company Number: US-Kiniksa Pharmaceuticals Ltd.-2024KPU000859

PATIENT
  Age: 33 Year
  Sex: Female

DRUGS (3)
  1. ARCALYST [Suspect]
     Active Substance: RILONACEPT
     Indication: Pericarditis
     Dosage: LOADING DOSE
     Route: 058
     Dates: start: 202405
  2. ARCALYST [Suspect]
     Active Substance: RILONACEPT
     Dosage: 20-MAY-2024, FIRST DOSE AFTER LOADING DOSE
     Route: 058
     Dates: start: 20240520
  3. ZOLOFT [Concomitant]
     Active Substance: SERTRALINE HYDROCHLORIDE

REACTIONS (5)
  - Atrioventricular block [Not Recovered/Not Resolved]
  - Pericardial effusion [Unknown]
  - Malaise [Not Recovered/Not Resolved]
  - Chest pain [Unknown]
  - Pericarditis [Unknown]

NARRATIVE: CASE EVENT DATE: 20240501
